FAERS Safety Report 5419520-6 (Version None)
Quarter: 2007Q3

REPORT INFORMATION
  Report Type: 
  Country: None (occurrence: None)
  Receive Date: 20070820
  Receipt Date: 20070725
  Transmission Date: 20080115
  Serious: No
  Sender: FDA-Public Use
  Company Number: AR-AVENTIS-200716857GDDC

PATIENT
  Sex: Female

DRUGS (6)
  1. ARAVA [Suspect]
     Indication: RHEUMATOID ARTHRITIS
     Route: 048
     Dates: start: 20040101, end: 20070711
  2. OMEPRAZOLE [Concomitant]
  3. FOLIC ACID [Concomitant]
  4. T4 [Concomitant]
     Indication: HYPOTHYROIDISM
  5. PARACETAMOL [Concomitant]
  6. UNKNOWN DRUG [Concomitant]
     Indication: RHEUMATOID ARTHRITIS

REACTIONS (1)
  - DRUG EXPOSURE DURING PREGNANCY [None]
